FAERS Safety Report 14039827 (Version 3)
Quarter: 2018Q1

REPORT INFORMATION
  Report Type: Report from Study
  Country: US (occurrence: US)
  Receive Date: 20171004
  Receipt Date: 20180130
  Transmission Date: 20180508
  Serious: Yes (Death, Hospitalization, Other)
  Sender: FDA-Public Use
  Company Number: US-GILEAD-2017-0296359

PATIENT
  Sex: Male

DRUGS (10)
  1. BUMETANIDE. [Concomitant]
     Active Substance: BUMETANIDE
  2. KCL HAUSMANN [Concomitant]
  3. LIPITOR [Concomitant]
     Active Substance: ATORVASTATIN CALCIUM
  4. COUMADIN [Concomitant]
     Active Substance: WARFARIN SODIUM
  5. COREG [Concomitant]
     Active Substance: CARVEDILOL
  6. RANOLAZINE. [Suspect]
     Active Substance: RANOLAZINE
     Indication: VENTRICULAR ARRHYTHMIA
     Route: 065
  7. LISINOPRIL. [Concomitant]
     Active Substance: LISINOPRIL
  8. ALLOPURINOL. [Concomitant]
     Active Substance: ALLOPURINOL
  9. VITAMIN B12 [Concomitant]
     Active Substance: CYANOCOBALAMIN
  10. CALCITRIOL. [Concomitant]
     Active Substance: CALCITRIOL

REACTIONS (8)
  - Gastrointestinal disorder [Unknown]
  - Blood disorder [Unknown]
  - Dizziness [Unknown]
  - Seroma [Unknown]
  - Death [Fatal]
  - Asthenia [Unknown]
  - Systemic infection [Unknown]
  - Cardiovascular disorder [Unknown]

NARRATIVE: CASE EVENT DATE: 20161005
